FAERS Safety Report 25444878 (Version 1)
Quarter: 2025Q2

REPORT INFORMATION
  Report Type: Report from Study
  Country: TR (occurrence: TR)
  Receive Date: 20250617
  Receipt Date: 20250617
  Transmission Date: 20250717
  Serious: Yes (Other)
  Sender: CHEPLAPHARM
  Company Number: TR-CHEPLA-2025007371

PATIENT
  Age: 22 Year
  Sex: Female

DRUGS (1)
  1. OLANZAPINE [Suspect]
     Active Substance: OLANZAPINE
     Indication: Psychotic disorder
     Dosage: EVENTUALLY INCREASED TO 20 MG/DAY?DAILY DOSE: 20 MILLIGRAM

REACTIONS (2)
  - Neuroleptic malignant syndrome [Unknown]
  - Systemic lupus erythematosus [Unknown]
